FAERS Safety Report 4309413-X (Version None)
Quarter: 2004Q1

REPORT INFORMATION
  Report Type: 
  Country: None (occurrence: None)
  Receive Date: 20040301
  Receipt Date: 20040217
  Transmission Date: 20041129
  Serious: Yes (Hospitalization, Disabling)
  Sender: FDA-Public Use
  Company Number: 2004SE00686

PATIENT
  Age: 47 Year
  Sex: Male

DRUGS (12)
  1. FOSCAVIR [Suspect]
     Indication: HERPES VIRUS INFECTION
     Dosage: 12000 MG DAILY
     Dates: start: 20031009, end: 20031018
  2. FOSCAVIR [Suspect]
     Indication: PROPHYLAXIS
     Dosage: 12000 MG DAILY
     Dates: start: 20031009, end: 20031018
  3. FOSCAVIR [Suspect]
     Indication: HERPES VIRUS INFECTION
     Dosage: 6000 MG DAILY
  4. FOSCAVIR [Suspect]
     Indication: PROPHYLAXIS
     Dosage: 6000 MG DAILY
  5. FOSCAVIR [Suspect]
     Indication: HERPES VIRUS INFECTION
     Dosage: 3500 MG DAILY IV
     Route: 042
     Dates: start: 20031215
  6. FOSCAVIR [Suspect]
     Indication: PROPHYLAXIS
     Dosage: 3500 MG DAILY IV
     Route: 042
     Dates: start: 20031215
  7. FOSCAVIR [Suspect]
     Indication: HERPES VIRUS INFECTION
     Dosage: 3000 MG DAILY IV
     Route: 042
     Dates: start: 20031229
  8. FOSCAVIR [Suspect]
     Indication: PROPHYLAXIS
     Dosage: 3000 MG DAILY IV
     Route: 042
     Dates: start: 20031229
  9. BACTRIMEL [Concomitant]
  10. CYCLOSPORINE [Concomitant]
  11. PREDNISONE [Concomitant]
  12. VALACYCLOVIR HCL [Concomitant]

REACTIONS (7)
  - CHEST X-RAY ABNORMAL [None]
  - DYSPNOEA [None]
  - IMMUNOSUPPRESSION [None]
  - LISTLESS [None]
  - MUSCLE CRAMP [None]
  - OEDEMA [None]
  - PARAESTHESIA [None]
